FAERS Safety Report 24073570 (Version 1)
Quarter: 2024Q3

REPORT INFORMATION
  Report Type: Spontaneous
  Country: IE (occurrence: IE)
  Receive Date: 20240710
  Receipt Date: 20240710
  Transmission Date: 20241017
  Serious: Yes (Other)
  Sender: TEVA
  Company Number: None

PATIENT
  Age: 45 Year
  Sex: Female
  Weight: 65 kg

DRUGS (2)
  1. PANTOPRAZOLE [Suspect]
     Active Substance: PANTOPRAZOLE
     Indication: Gastritis
     Dosage: 40 MG BD FOR 20 DAYS AND THEN 20 MG BD,?PANTOPRAZOLE (GENERIC)
     Route: 065
     Dates: start: 20230902, end: 20230921
  2. PANTOPRAZOLE [Suspect]
     Active Substance: PANTOPRAZOLE
     Indication: Gastritis
     Dosage: 20 MG BD, ?PANTOPRAZOLE (GENERIC)
     Route: 065
     Dates: start: 20230922, end: 20231117

REACTIONS (6)
  - Menstrual disorder [Recovered/Resolved]
  - Premenstrual syndrome [Recovered/Resolved]
  - Abdominal discomfort [Recovered/Resolved]
  - Insomnia [Recovered/Resolved]
  - Food intolerance [Recovered/Resolved]
  - Anxiety [Recovered/Resolved]

NARRATIVE: CASE EVENT DATE: 20230914
